FAERS Safety Report 21918286 (Version 2)
Quarter: 2023Q1

REPORT INFORMATION
  Report Type: Spontaneous
  Country: RU (occurrence: None)
  Receive Date: 20230127
  Receipt Date: 20230131
  Transmission Date: 20230418
  Serious: Yes (Death, Other)
  Sender: FDA-Public Use
  Company Number: RU-ROCHE-2923465

PATIENT
  Age: 51 Year
  Sex: Male

DRUGS (10)
  1. GAZYVA [Suspect]
     Active Substance: OBINUTUZUMAB
     Indication: Follicular lymphoma
     Route: 042
  2. GAZYVA [Suspect]
     Active Substance: OBINUTUZUMAB
     Dosage: 1000 MG ON DAYS 1,8,15.
     Route: 041
     Dates: start: 202009
  3. GAZYVA [Suspect]
     Active Substance: OBINUTUZUMAB
     Dosage: 1000 MG ON DAY 1
     Route: 041
  4. RITUXIMAB [Suspect]
     Active Substance: RITUXIMAB
     Indication: Follicular lymphoma
     Dosage: 8 CYCLES
     Route: 065
     Dates: start: 201909
  5. CYCLOPHOSPHAMIDE [Suspect]
     Active Substance: CYCLOPHOSPHAMIDE
     Indication: Follicular lymphoma
     Dosage: 8 CYCLES
     Route: 065
     Dates: start: 201909
  6. VINCRISTINE [Suspect]
     Active Substance: VINCRISTINE
     Indication: Follicular lymphoma
     Dosage: 8 CYCLES
     Route: 065
     Dates: start: 201909
  7. DOXORUBICIN HYDROCHLORIDE [Suspect]
     Active Substance: DOXORUBICIN HYDROCHLORIDE
     Indication: Follicular lymphoma
     Dosage: 8 CYCLES
     Route: 065
     Dates: start: 201909
  8. PREDNISONE [Suspect]
     Active Substance: PREDNISONE
     Indication: Follicular lymphoma
     Dosage: 8 CYCLES
     Route: 065
     Dates: start: 201909
  9. BENDAMUSTINE [Suspect]
     Active Substance: BENDAMUSTINE
     Indication: Follicular lymphoma
     Dosage: 90 MG DAY 1, 2
     Route: 041
     Dates: start: 202009
  10. BENDAMUSTINE [Suspect]
     Active Substance: BENDAMUSTINE
     Dosage: 90 MG FOR SQ.M. ON DAYS 1,2
     Route: 041

REACTIONS (5)
  - Hypertension [Unknown]
  - Neutropenia [Recovered/Resolved]
  - Death [Fatal]
  - Therapy partial responder [Unknown]
  - COVID-19 [Unknown]

NARRATIVE: CASE EVENT DATE: 20210901
